FAERS Safety Report 15343296 (Version 2)
Quarter: 2018Q4

REPORT INFORMATION
  Report Type: Spontaneous
  Country: DE (occurrence: DE)
  Receive Date: 20180903
  Receipt Date: 20180914
  Transmission Date: 20190204
  Serious: Yes (Other)
  Sender: FDA-Public Use
  Company Number: DE-AUROBINDO-AUR-APL-2018-043198

PATIENT
  Age: 65 Year
  Sex: Female

DRUGS (2)
  1. DULOXETIN PUREN GASTRO RESISTANT CAPSULES, HARD 20 MG [Suspect]
     Active Substance: DULOXETINE
     Indication: STRESS URINARY INCONTINENCE
     Dosage: 20 MILLIGRAM, DAILY
     Route: 048
     Dates: start: 20180817, end: 20180819
  2. L-THYROXINE                        /00068001/ [Concomitant]
     Active Substance: LEVOTHYROXINE
     Indication: PRODUCT USED FOR UNKNOWN INDICATION

REACTIONS (9)
  - Syncope [Recovered/Resolved]
  - Feeling hot [Recovered/Resolved]
  - Loss of consciousness [Unknown]
  - Fatigue [Recovered/Resolved]
  - Pollakiuria [Recovered/Resolved]
  - Skin abrasion [Unknown]
  - Hyperhidrosis [Recovered/Resolved]
  - Dysuria [Recovered/Resolved]
  - Haematoma [Unknown]

NARRATIVE: CASE EVENT DATE: 20180817
